FAERS Safety Report 20163584 (Version 1)
Quarter: 2021Q4

REPORT INFORMATION
  Report Type: Other
  Country: IN (occurrence: None)
  Receive Date: 20211209
  Receipt Date: 20211209
  Transmission Date: 20220303
  Serious: Yes (Other)
  Sender: FDA-Public Use
  Company Number: IN-MLMSERVICE-20211125-3242424-1

PATIENT
  Age: 32 Year
  Sex: Male

DRUGS (7)
  1. VALGANCICLOVIR HYDROCHLORIDE [Suspect]
     Active Substance: VALGANCICLOVIR HYDROCHLORIDE
     Indication: Cytomegalovirus viraemia
     Route: 048
  2. MYCOPHENOLATE MOFETIL [Suspect]
     Active Substance: MYCOPHENOLATE MOFETIL
     Indication: Immunosuppression
     Route: 065
     Dates: start: 2016, end: 201701
  3. MYCOPHENOLATE MOFETIL [Suspect]
     Active Substance: MYCOPHENOLATE MOFETIL
     Indication: Prophylaxis against transplant rejection
     Route: 065
     Dates: start: 201704
  4. TACROLIMUS [Suspect]
     Active Substance: TACROLIMUS
     Indication: Immunosuppression
     Route: 065
     Dates: start: 2016, end: 201704
  5. TACROLIMUS [Suspect]
     Active Substance: TACROLIMUS
     Indication: Prophylaxis against transplant rejection
  6. EVEROLIMUS [Concomitant]
     Active Substance: EVEROLIMUS
  7. RAMIPRIL [Concomitant]
     Active Substance: RAMIPRIL
     Dates: start: 201807, end: 201808

REACTIONS (3)
  - Thrombocytopenia [Recovered/Resolved]
  - Cytomegalovirus viraemia [Recovered/Resolved]
  - Off label use [Unknown]

NARRATIVE: CASE EVENT DATE: 20170101
